FAERS Safety Report 8745751 (Version 3)
Quarter: 2012Q4

REPORT INFORMATION
  Report Type: 
  Country: US (occurrence: US)
  Receive Date: 20120827
  Receipt Date: 20121016
  Transmission Date: 20130627
  Serious: Yes (Other)
  Sender: FDA-Public Use
  Company Number: US-BIOGENIDEC-2012BI032778

PATIENT
  Age: 60 Year
  Sex: Female

DRUGS (5)
  1. AVONEX [Suspect]
     Indication: MULTIPLE SCLEROSIS
     Route: 030
     Dates: start: 19981001
  2. TYSABRI [Concomitant]
     Indication: MULTIPLE SCLEROSIS
     Route: 042
     Dates: start: 20120808
  3. COPAXONE [Concomitant]
     Dates: start: 2006
  4. INTERFERONS (NOS) [Concomitant]
  5. HORMONE REPLACEMENT THERAPY [Concomitant]

REACTIONS (1)
  - Breast cancer stage I [Not Recovered/Not Resolved]
